FAERS Safety Report 18489223 (Version 1)
Quarter: 2020Q4

REPORT INFORMATION
  Report Type: Spontaneous
  Country: US (occurrence: US)
  Receive Date: 20201111
  Receipt Date: 20201111
  Transmission Date: 20210114
  Serious: No
  Sender: FDA-Public Use
  Company Number: US-CELGENEUS-USA-20200803910

PATIENT
  Sex: Female

DRUGS (1)
  1. REVLIMID [Suspect]
     Active Substance: LENALIDOMIDE
     Indication: PLASMA CELL MYELOMA
     Dosage: 20 MILLIGRAMS
     Route: 048
     Dates: start: 20200727

REACTIONS (10)
  - Fatigue [Unknown]
  - Constipation [Unknown]
  - Decreased appetite [Unknown]
  - Rash [Recovered/Resolved]
  - Memory impairment [Unknown]
  - Nausea [Unknown]
  - Insomnia [Not Recovered/Not Resolved]
  - Dizziness [Unknown]
  - Gastrooesophageal reflux disease [Unknown]
  - Diarrhoea [Recovering/Resolving]

NARRATIVE: CASE EVENT DATE: 2020
